FAERS Safety Report 20420345 (Version 2)
Quarter: 2022Q2

REPORT INFORMATION
  Report Type: Spontaneous
  Country: US (occurrence: US)
  Receive Date: 20220203
  Receipt Date: 20220404
  Transmission Date: 20220721
  Serious: No
  Sender: FDA-Public Use
  Company Number: US-MICRO LABS LIMITED-ML2022-00366

PATIENT
  Age: 68 Year
  Sex: Female

DRUGS (2)
  1. TRAVOPROST [Suspect]
     Active Substance: TRAVOPROST
     Indication: Glaucoma
     Dosage: ONE DROP IN EACH EYE AT BEDTIME
     Route: 047
     Dates: start: 202201
  2. RHOPRESSA [Concomitant]
     Active Substance: NETARSUDIL MESYLATE
     Indication: Glaucoma

REACTIONS (2)
  - Incorrect dose administered [Unknown]
  - Product container issue [Unknown]

NARRATIVE: CASE EVENT DATE: 20220101
